FAERS Safety Report 6602999-1 (Version None)
Quarter: 2010Q1

REPORT INFORMATION
  Report Type: 
  Country: None (occurrence: None)
  Receive Date: 20100226
  Receipt Date: 20100222
  Transmission Date: 20100710
  Serious: Yes (Hospitalization, Other)
  Sender: FDA-Public Use
  Company Number: US-BAYER-201014648NA

PATIENT
  Age: 23 Year
  Sex: Female

DRUGS (1)
  1. MIRENA [Suspect]
     Indication: DRUG USE FOR UNKNOWN INDICATION
     Dosage: MIRENA INSERTION WAS 6 WEEKS POSTPARTUM.
     Route: 015
     Dates: start: 20090101, end: 20090824

REACTIONS (8)
  - ABDOMINAL PAIN [None]
  - COITAL BLEEDING [None]
  - NAUSEA [None]
  - OVARIAN CYST [None]
  - PELVIC INFLAMMATORY DISEASE [None]
  - PELVIC PAIN [None]
  - VAGINAL HAEMORRHAGE [None]
  - VOMITING [None]
